FAERS Safety Report 15296557 (Version 1)
Quarter: 2018Q3

REPORT INFORMATION
  Report Type: Spontaneous
  Country: DE (occurrence: DE)
  Receive Date: 20180820
  Receipt Date: 20180820
  Transmission Date: 20181010
  Serious: Yes (Hospitalization, Other)
  Sender: FDA-Public Use
  Company Number: PHHY2016DE187117

PATIENT
  Age: 67 Year
  Sex: Male
  Weight: 84 kg

DRUGS (34)
  1. 5?FLUOROURACIL [Suspect]
     Active Substance: FLUOROURACIL
     Indication: PRODUCT USED FOR UNKNOWN INDICATION
     Dosage: 6300 MG, Q2W
     Route: 041
     Dates: start: 20160302, end: 20160304
  2. OXALIPLATIN. [Suspect]
     Active Substance: OXALIPLATIN
     Dosage: 120 MG, Q2W
     Route: 042
     Dates: start: 20160531
  3. OXALIPLATIN. [Suspect]
     Active Substance: OXALIPLATIN
     Dosage: 120 MG, Q2W
     Route: 042
     Dates: start: 20160809
  4. FOLINIC ACID [Suspect]
     Active Substance: LEUCOVORIN
     Dosage: 2900 MG, UNK
     Route: 042
  5. FOLINIC ACID [Suspect]
     Active Substance: LEUCOVORIN
     Dosage: 290 MG, UNK
     Route: 042
  6. PYRIDOSTIGMINE [Concomitant]
     Active Substance: PYRIDOSTIGMINE
     Indication: MYASTHENIA GRAVIS
     Dosage: 120 MG, QD
     Route: 048
  7. 5?FLUOROURACIL [Suspect]
     Active Substance: FLUOROURACIL
     Dosage: 6250 MG, Q2W
     Route: 041
     Dates: start: 20160315, end: 20160331
  8. FOLINIC ACID [Suspect]
     Active Substance: LEUCOVORIN
     Dosage: 390 MG, Q2W
     Route: 042
     Dates: start: 20160302, end: 20160329
  9. GLANDOMED [Concomitant]
     Indication: PRODUCT USED FOR UNKNOWN INDICATION
     Dosage: 3 OT, QD
     Route: 048
  10. IRINOTECAN [Suspect]
     Active Substance: IRINOTECAN
     Indication: COLORECTAL CANCER
     Dosage: 320 MG, Q2W
     Route: 042
     Dates: start: 20160302, end: 20160329
  11. SIMVASTATIN. [Concomitant]
     Active Substance: SIMVASTATIN
     Indication: HYPERTENSION
     Dosage: 40 MG, QD
     Route: 048
  12. OXALIPLATIN. [Suspect]
     Active Substance: OXALIPLATIN
     Indication: COLORECTAL CANCER
     Dosage: 165 MG, Q2W
     Route: 042
     Dates: start: 20160302, end: 20160329
  13. OXALIPLATIN. [Suspect]
     Active Substance: OXALIPLATIN
     Dosage: 125 MG, Q2W
     Route: 042
     Dates: start: 20160419, end: 20160503
  14. RAMIPRIL. [Concomitant]
     Active Substance: RAMIPRIL
     Indication: HYPERTENSION
     Dosage: 2.5 MG, QD
     Route: 048
  15. AMPHO MORONAL [Concomitant]
     Active Substance: AMPHOTERICIN B
     Indication: PRODUCT USED FOR UNKNOWN INDICATION
     Dosage: 100 MG/ML
     Route: 048
     Dates: start: 20160407
  16. 5?FLUOROURACIL [Suspect]
     Active Substance: FLUOROURACIL
     Dosage: 4450 MG, Q2W
     Route: 041
     Dates: start: 20160531, end: 20160811
  17. FOLINIC ACID [Suspect]
     Active Substance: LEUCOVORIN
     Indication: COLORECTAL CANCER
     Dosage: 280 MG, UNK
     Route: 042
  18. IRINOTECAN [Suspect]
     Active Substance: IRINOTECAN
     Dosage: 220 MG, Q2W
     Route: 042
     Dates: start: 20160531, end: 20160809
  19. BEVACIZUMAB. [Suspect]
     Active Substance: BEVACIZUMAB
     Indication: COLORECTAL CANCER
     Dosage: 400 MG, UNK
     Route: 042
  20. PREDNISOLON [Concomitant]
     Active Substance: PREDNISOLONE
     Indication: MYASTHENIA GRAVIS
     Dosage: 5 MG, QD
     Route: 048
  21. TEPILTA [Concomitant]
     Active Substance: ALUMINUM HYDROXIDE\MAGNESIUM OXIDE\OXETHAZAINE
     Indication: PRODUCT USED FOR UNKNOWN INDICATION
     Dosage: 30 ML, QD
     Route: 048
     Dates: start: 20160407
  22. RAMIPRIL. [Concomitant]
     Active Substance: RAMIPRIL
     Dosage: 2.5 MG, QD (1?0?0)
     Route: 048
  23. L?THYROXIN [Concomitant]
     Active Substance: LEVOTHYROXINE SODIUM
     Indication: HYPOTHYROIDISM
     Dosage: 100 UG, QD
     Route: 048
  24. PANTOPRAZOLE [Concomitant]
     Active Substance: PANTOPRAZOLE
     Indication: MYASTHENIA GRAVIS
     Dosage: 20 MG, QD
     Route: 048
  25. VIGANTOLETTEN [Concomitant]
     Active Substance: CHOLECALCIFEROL
     Indication: MYASTHENIA GRAVIS
     Dosage: 1000 IU, QD
     Route: 048
  26. NOVAMINSULFON [Concomitant]
     Active Substance: METAMIZOLE
     Indication: MYASTHENIA GRAVIS
     Dosage: 500 MG, UNK
     Route: 048
  27. 5?FLUOROURACIL [Suspect]
     Active Substance: FLUOROURACIL
     Dosage: 4700 MG, Q2W
     Route: 041
     Dates: start: 20160419, end: 20160505
  28. IRINOTECAN [Suspect]
     Active Substance: IRINOTECAN
     Dosage: 240 MG, Q2W
     Route: 042
     Dates: start: 20160419, end: 20160503
  29. BEVACIZUMAB. [Suspect]
     Active Substance: BEVACIZUMAB
     Dosage: 425 MG, Q2W
     Route: 042
     Dates: start: 20160302
  30. BEVACIZUMAB. [Suspect]
     Active Substance: BEVACIZUMAB
     Dosage: 400 MG, Q2W
     Route: 042
     Dates: start: 20160329
  31. ASPIRIN. [Concomitant]
     Active Substance: ASPIRIN
     Indication: HYPERTENSION
     Dosage: 100 MG, QD
     Route: 048
  32. JONOSTERIL (CALCIUM CHLORIDE\POTASSIUM CHLORIDE\SODIUM LACTATE) [Concomitant]
     Active Substance: CALCIUM CHLORIDE\POTASSIUM CHLORIDE\SODIUM LACTATE
     Indication: PRODUCT USED FOR UNKNOWN INDICATION
     Dosage: 2000 ML, QD
     Route: 042
     Dates: start: 20160407
  33. EMBOLEX [Concomitant]
     Active Substance: DIHYDROERGOTAMINE MESYLATE\HEPARIN SODIUM\LIDOCAINE HYDROCHLORIDE
     Indication: PRODUCT USED FOR UNKNOWN INDICATION
     Dosage: 30000 IU, QD
     Route: 058
     Dates: start: 20160406
  34. AZATHIOPRIN [Concomitant]
     Active Substance: AZATHIOPRINE
     Indication: MYASTHENIA GRAVIS
     Dosage: 200 MG, QD
     Route: 048

REACTIONS (5)
  - Pulpitis dental [Recovered/Resolved]
  - Anaemia [Recovered/Resolved]
  - Mucosal inflammation [Recovered/Resolved]
  - Leukopenia [Recovered/Resolved]
  - Anaemia [Recovered/Resolved]

NARRATIVE: CASE EVENT DATE: 20160406
